FAERS Safety Report 15362263 (Version 5)
Quarter: 2021Q2

REPORT INFORMATION
  Report Type: Report from Study
  Country: GB (occurrence: GB)
  Receive Date: 20180907
  Receipt Date: 20210510
  Transmission Date: 20210716
  Serious: Yes (Hospitalization, Other)
  Sender: FDA-Public Use
  Company Number: GB-PFIZER INC-2018357655

PATIENT
  Age: 54 Year
  Sex: Female

DRUGS (27)
  1. PHOSPHATE?SANDOZ [Concomitant]
     Active Substance: SODIUM PHOSPHATE, MONOBASIC, ANHYDROUS
     Dosage: UNK, 2X/DAY (EVERY 0.5 DAYS)
     Route: 048
     Dates: start: 20161106
  2. COLECALCIFEROL [Concomitant]
     Active Substance: CHOLECALCIFEROL
     Dosage: 500 MG, DAILY
     Route: 048
     Dates: start: 201611, end: 20171201
  3. LANSOPRAZOLE. [Concomitant]
     Active Substance: LANSOPRAZOLE
     Dosage: 30 MG, DAILY
     Route: 048
     Dates: start: 20171201
  4. PERTUZUMAB. [Suspect]
     Active Substance: PERTUZUMAB
     Indication: BREAST CANCER METASTATIC
     Dosage: 840 MG, 1X/DAY
     Route: 042
     Dates: start: 20160211, end: 20160211
  5. PERTUZUMAB. [Suspect]
     Active Substance: PERTUZUMAB
     Dosage: 420 MG, EVERY 3 WEEKS
     Route: 042
     Dates: start: 20160303, end: 20170821
  6. PERTUZUMAB. [Suspect]
     Active Substance: PERTUZUMAB
     Dosage: 840 MG, EVERY 3 WEEKS
     Route: 042
     Dates: start: 20170928, end: 20170928
  7. MEROPENEM. [Concomitant]
     Active Substance: MEROPENEM
     Dosage: 1 G
     Route: 042
     Dates: start: 20170828, end: 20170828
  8. DOCETAXEL. [Suspect]
     Active Substance: DOCETAXEL
     Indication: BREAST CANCER METASTATIC
     Dosage: 50 MG, EVERY 3 WEEKS (6 CYCLES)
     Route: 042
     Dates: start: 20160212, end: 20160526
  9. DOCETAXEL. [Suspect]
     Active Substance: DOCETAXEL
     Dosage: 150 MG, EVERY 3 WEEKS
     Route: 042
     Dates: start: 20160217, end: 20160602
  10. MACROGOL [Concomitant]
     Active Substance: POLYETHYLENE GLYCOLS
     Indication: CONSTIPATION
     Dosage: UNK , 2X/DAY (EVERY 0.5 DAYS)
     Route: 048
     Dates: end: 20161031
  11. ENOXAPARIN [Concomitant]
     Active Substance: ENOXAPARIN
     Dosage: 90 MG, DAILY
     Route: 058
     Dates: start: 201701
  12. SODIUM PICOSULPHATE [Concomitant]
     Active Substance: SODIUM PICOSULFATE
     Indication: UROSEPSIS
     Dosage: 10 MG, 1X/DAY
     Route: 048
     Dates: start: 201709, end: 20171201
  13. TRASTUZUMAB. [Suspect]
     Active Substance: TRASTUZUMAB
     Dosage: 609 MG, EVERY 3 WEEKS
     Route: 042
     Dates: start: 20170928, end: 20170928
  14. PERTUZUMAB. [Suspect]
     Active Substance: PERTUZUMAB
     Dosage: 420 MG, EVERY 3 WEEKS
     Route: 042
     Dates: start: 20160310, end: 20170218
  15. PERTUZUMAB. [Suspect]
     Active Substance: PERTUZUMAB
     Dosage: 420 MG, EVERY 3 WEEKS
     Route: 042
     Dates: start: 20171020, end: 20171201
  16. FORTISIP [Concomitant]
     Active Substance: CARBOHYDRATES\FATTY ACIDS\MINERALS\PROTEIN\VITAMINS
     Dosage: 400 ML, DAILY (LIQUID)
     Route: 048
     Dates: end: 20171201
  17. TRIMETHOPRIM. [Concomitant]
     Active Substance: TRIMETHOPRIM
     Indication: PNEUMONIA
     Dosage: 100 MG, 1X/DAY
     Route: 048
     Dates: start: 20170831, end: 20170903
  18. DOCETAXEL. [Suspect]
     Active Substance: DOCETAXEL
     Dosage: 120 MG, EVERY 3 WEEKS
     Route: 042
     Dates: start: 20170928
  19. TRASTUZUMAB. [Suspect]
     Active Substance: TRASTUZUMAB
     Indication: BREAST CANCER METASTATIC
     Dosage: 462 MG, 1X/DAY
     Route: 042
     Dates: start: 20160212, end: 20160212
  20. TRASTUZUMAB. [Suspect]
     Active Substance: TRASTUZUMAB
     Dosage: 504 MG, EVERY 3 WEEKS
     Route: 042
     Dates: start: 20160613, end: 20180216
  21. TRASTUZUMAB. [Suspect]
     Active Substance: TRASTUZUMAB
     Dosage: 357 MG, EVERY 3 WEEKS
     Route: 042
     Dates: start: 20160303, end: 20161108
  22. TRASTUZUMAB. [Suspect]
     Active Substance: TRASTUZUMAB
     Dosage: 315 MG, EVERY 3 WEEKS
     Route: 042
     Dates: start: 20161129, end: 20170821
  23. CALCIUM [Concomitant]
     Active Substance: CALCIUM
  24. TRASTUZUMAB. [Suspect]
     Active Substance: TRASTUZUMAB
     Dosage: 462 MG, EVERY 3 WEEKS
     Route: 042
     Dates: start: 20171020, end: 20171201
  25. OXYCODONE [Concomitant]
     Active Substance: OXYCODONE
     Dosage: 10 MG, UNK
     Route: 048
     Dates: end: 20171201
  26. TRASTUZUMAB. [Suspect]
     Active Substance: TRASTUZUMAB
     Dosage: 357 MG, EVERY 3 WEEKS
     Route: 042
     Dates: start: 20161129, end: 20170821
  27. TRASTUZUMAB. [Suspect]
     Active Substance: TRASTUZUMAB
     Dosage: 672 MG, EVERY 3 WEEKS
     Route: 042
     Dates: start: 20160217, end: 20160217

REACTIONS (7)
  - Urosepsis [Recovered/Resolved]
  - Diarrhoea [Recovered/Resolved]
  - Lower respiratory tract infection [Recovered/Resolved]
  - Dyspnoea [Recovering/Resolving]
  - Back pain [Recovered/Resolved]
  - Pneumonia [Recovered/Resolved]
  - Respiratory tract infection [Recovered/Resolved]

NARRATIVE: CASE EVENT DATE: 20161027
